FAERS Safety Report 12862891 (Version 2)
Quarter: 2017Q1

REPORT INFORMATION
  Report Type: Report from Study
  Country: DE (occurrence: DE)
  Receive Date: 20161019
  Receipt Date: 20170226
  Transmission Date: 20170428
  Serious: Yes (Hospitalization)
  Sender: FDA-Public Use
  Company Number: DE-BIOGEN-2016BI00305644

PATIENT
  Age: 59 Year
  Sex: Female

DRUGS (1)
  1. TECFIDERA [Suspect]
     Active Substance: DIMETHYL FUMARATE
     Indication: MULTIPLE SCLEROSIS
     Dosage: MAINTENANCE DOSE
     Route: 048
     Dates: start: 20160217

REACTIONS (8)
  - Memory impairment [Recovered/Resolved]
  - Drug dose omission [Recovered/Resolved]
  - Prescribed underdose [Not Recovered/Not Resolved]
  - Pain [Recovered/Resolved with Sequelae]
  - Feeling abnormal [Unknown]
  - Alopecia [Recovered/Resolved]
  - Nausea [Recovered/Resolved with Sequelae]
  - Visual impairment [Recovered/Resolved with Sequelae]

NARRATIVE: CASE EVENT DATE: 2016
